FAERS Safety Report 8805275 (Version 1)
Quarter: 2012Q4

REPORT INFORMATION
  Report Type: Report from Study
  Country: NL (occurrence: NL)
  Receive Date: 20120924
  Receipt Date: 20120924
  Transmission Date: 20130627
  Serious: Yes (Hospitalization)
  Sender: FDA-Public Use
  Company Number: PHHO2012NL013642

PATIENT
  Age: 53 Year
  Sex: Female
  Weight: 76 kg

DRUGS (8)
  1. NO TREATMENT RECEIVED [Suspect]
     Indication: BREAST CANCER
     Dosage: No treatment received
  2. FLUOROURACIL [Suspect]
     Indication: BREAST CANCER
     Dosage: 915 mg, UNK
     Route: 042
     Dates: start: 20110218
  3. FARMORUBICINE [Suspect]
     Indication: BREAST CANCER
     Dosage: 183 mg, UNK
     Route: 042
     Dates: start: 20110218
  4. ENDOXAN [Suspect]
     Indication: BREAST CANCER
     Dosage: 915 mg, UNK
     Route: 042
     Dates: start: 20110218
  5. GRANISETRON [Concomitant]
     Indication: PROPHYLAXIS OF NAUSEA AND VOMITING
     Dosage: 2 mg, QD (on days when FEC was administered)
     Route: 048
     Dates: start: 20110218, end: 20110401
  6. DEXAMETHASONE [Concomitant]
     Indication: PROPHYLAXIS OF NAUSEA AND VOMITING
     Dosage: 4 mg, BID (on day 1-3 of cycle)
     Route: 048
     Dates: start: 20110218, end: 20110401
  7. ONDANSETRON [Concomitant]
     Indication: PROPHYLAXIS OF NAUSEA AND VOMITING
     Dosage: 8 mg, BID (on days when FEC was administered)
     Dates: start: 20110218, end: 20110401
  8. METOCLOPRAMIDE [Concomitant]
     Indication: NAUSEA
     Dosage: 10 mg, PRN (max 4 times daily)
     Route: 048
     Dates: start: 20110218, end: 20110401

REACTIONS (1)
  - Febrile neutropenia [Recovered/Resolved]
